FAERS Safety Report 4895122-5 (Version None)
Quarter: 2006Q1

REPORT INFORMATION
  Report Type: 
  Country: None (occurrence: None)
  Receive Date: 20060125
  Receipt Date: 20060113
  Transmission Date: 20060701
  Serious: Yes (Hospitalization)
  Sender: FDA-Public Use
  Company Number: HQWYE325013JAN06

PATIENT
  Age: 78 Year
  Sex: Female

DRUGS (7)
  1. INDERAL [Suspect]
     Indication: HYPERTENSION
     Dosage: 160 MG 1X PER 1 DAY, ORAL
     Route: 048
  2. DIGOXIN [Suspect]
     Indication: ATRIAL FIBRILLATION
     Dosage: 250 UG 1X PER 1 DAY, ORAL
     Route: 048
     Dates: end: 20020730
  3. REMINYL (GALANTAMINE, ) [Suspect]
     Dosage: 4 MG 2X PER 1 DAY, ORAL
     Route: 048
  4. WARFARIN SODIUM [Concomitant]
  5. ASPIRIN [Concomitant]
  6. BENDROFLUAZIDE (BENDROFLUMETHIAZIDE) [Concomitant]
  7. THYROXINE ^COX^ (LEVOTHYROXINE SODIUM) [Concomitant]

REACTIONS (7)
  - BRADYCARDIA [None]
  - CHEST DISCOMFORT [None]
  - CREATININE RENAL CLEARANCE DECREASED [None]
  - NAUSEA [None]
  - PALPITATIONS [None]
  - THERAPEUTIC AGENT TOXICITY [None]
  - VOMITING [None]
